FAERS Safety Report 10160351 (Version 2)
Quarter: 2014Q2

REPORT INFORMATION
  Report Type: Spontaneous
  Country: US (occurrence: US)
  Receive Date: 20140508
  Receipt Date: 20140602
  Transmission Date: 20141212
  Serious: Yes (Life-Threatening, Hospitalization)
  Sender: FDA-Public Use
  Company Number: US-ELI_LILLY_AND_COMPANY-US201405002149

PATIENT
  Age: 72 Year
  Sex: Female
  Weight: 53.7 kg

DRUGS (3)
  1. EFFIENT [Suspect]
     Indication: STENT PLACEMENT
     Dosage: 60 MG, SINGLE
     Route: 048
     Dates: start: 20140430, end: 20140430
  2. LOPRESSOR [Concomitant]
     Indication: HYPERTENSION
  3. LISINOPRIL [Concomitant]
     Indication: HYPERTENSION

REACTIONS (4)
  - Thrombosis in device [Recovered/Resolved]
  - Acute myocardial infarction [Unknown]
  - Respiratory failure [Recovered/Resolved]
  - Pulmonary oedema [Recovered/Resolved]
